FAERS Safety Report 16864032 (Version 4)
Quarter: 2020Q2

REPORT INFORMATION
  Report Type: Spontaneous
  Country: US (occurrence: US)
  Receive Date: 20190927
  Receipt Date: 20200626
  Transmission Date: 20200713
  Serious: Yes (Hospitalization)
  Sender: FDA-Public Use
  Company Number: US-ALLERGAN-1904049US

PATIENT
  Sex: Female

DRUGS (6)
  1. DORZOLAMIDE [Concomitant]
     Active Substance: DORZOLAMIDE
     Dosage: UNK
     Route: 047
  2. ARMOUR THYROID [Suspect]
     Active Substance: THYROID, PORCINE
     Dosage: 1 DF, QD
     Route: 048
     Dates: start: 1959
  3. ARMOUR THYROID [Suspect]
     Active Substance: THYROID, PORCINE
     Indication: THYROIDECTOMY
     Dosage: 0.5 DF
     Route: 048
     Dates: end: 2020
  4. EYE DROPS [Concomitant]
     Active Substance: UNSPECIFIED INGREDIENT
     Indication: GLAUCOMA
     Dosage: UNK
     Route: 047
  5. METOPROLOL. [Concomitant]
     Active Substance: METOPROLOL
     Dosage: UNK
  6. LATANOPROST. [Concomitant]
     Active Substance: LATANOPROST
     Dosage: UNK
     Route: 047

REACTIONS (13)
  - Hypothyroidism [Recovered/Resolved]
  - Thyroid hormones increased [Recovered/Resolved]
  - Dry eye [Recovered/Resolved]
  - Periorbital swelling [Recovered/Resolved]
  - Incorrect dose administered [Unknown]
  - Heart rate irregular [Recovered/Resolved]
  - Dyspnoea [Recovered/Resolved]
  - Hair texture abnormal [Recovered/Resolved]
  - Drug ineffective [Unknown]
  - Asthenia [Recovering/Resolving]
  - Hypoaesthesia [Recovered/Resolved]
  - Fatigue [Recovered/Resolved]
  - Feeling cold [Recovered/Resolved]

NARRATIVE: CASE EVENT DATE: 201903
